FAERS Safety Report 7328759-4 (Version None)
Quarter: 2011Q1

REPORT INFORMATION
  Report Type: 
  Country: None (occurrence: None)
  Receive Date: 20110303
  Receipt Date: 20110218
  Transmission Date: 20110831
  Serious: Yes (Hospitalization, Other)
  Sender: FDA-Public Use
  Company Number: PHHY2011JP02796

PATIENT
  Age: 61 Year
  Sex: Male

DRUGS (1)
  1. DIOVAN [Suspect]
     Indication: HYPERTENSION
     Dosage: 80 MG DAILY
     Route: 048
     Dates: start: 20110101

REACTIONS (9)
  - WHITE BLOOD CELL COUNT INCREASED [None]
  - STOMATITIS [None]
  - EOSINOPHIL COUNT INCREASED [None]
  - RASH GENERALISED [None]
  - BLOOD ALBUMIN DECREASED [None]
  - LIP SWELLING [None]
  - PYREXIA [None]
  - C-REACTIVE PROTEIN INCREASED [None]
  - GLOSSODYNIA [None]
